FAERS Safety Report 15095795 (Version 2)
Quarter: 2018Q3

REPORT INFORMATION
  Report Type: Spontaneous
  Country: DE (occurrence: DE)
  Receive Date: 20180702
  Receipt Date: 20180709
  Transmission Date: 20181010
  Serious: No
  Sender: FDA-Public Use
  Company Number: DE-EMD SERONO-9026197

PATIENT
  Age: 39 Year
  Sex: Female
  Weight: 105 kg

DRUGS (2)
  1. MAVENCLAD [Suspect]
     Active Substance: CLADRIBINE
     Dosage: 20 MG 5 TIMES ?SECOND CYCLE OF TREATMENT
     Dates: start: 20180510, end: 20180515
  2. MAVENCLAD [Suspect]
     Active Substance: CLADRIBINE
     Indication: MULTIPLE SCLEROSIS
     Dosage: 20 MG 5 TIMES ?FIRST CYCLE OF TREATMENT
     Dates: start: 20180405, end: 20180409

REACTIONS (1)
  - Multiple sclerosis relapse [Recovered/Resolved]

NARRATIVE: CASE EVENT DATE: 20180429
